FAERS Safety Report 7850263-5 (Version None)
Quarter: 2011Q4

REPORT INFORMATION
  Report Type: 
  Country: None (occurrence: None)
  Receive Date: 20111026
  Receipt Date: 20111017
  Transmission Date: 20120403
  Serious: No
  Sender: FDA-Public Use
  Company Number: US-JNJFOC-20111008609

PATIENT
  Sex: Male

DRUGS (3)
  1. FENTANYL-100 [Suspect]
     Indication: PAIN
     Route: 062
     Dates: start: 20100101
  2. DURAGESIC-100 [Suspect]
     Indication: PAIN
     Route: 062
     Dates: start: 20110801
  3. FENTANYL-100 [Suspect]
     Route: 062

REACTIONS (4)
  - DRUG INEFFECTIVE [None]
  - DRUG DOSE OMISSION [None]
  - PRODUCT QUALITY ISSUE [None]
  - WITHDRAWAL SYNDROME [None]
